FAERS Safety Report 9254480 (Version 1)
Quarter: 2013Q2

REPORT INFORMATION
  Report Type: Spontaneous
  Country: US (occurrence: US)
  Receive Date: 20130425
  Receipt Date: 20130425
  Transmission Date: 20140414
  Serious: No
  Sender: FDA-Public Use
  Company Number: US-MYLANLABS-2013S1006906

PATIENT
  Age: 60 Year
  Sex: Male

DRUGS (1)
  1. RIZATRIPTAN BENZOATE ORALLY DISINTEGRATING TABLETS [Suspect]
     Indication: MIGRAINE
     Route: 048
     Dates: start: 20130325

REACTIONS (2)
  - Oral discomfort [Recovered/Resolved]
  - Dysgeusia [Recovered/Resolved]
